FAERS Safety Report 7417029-1 (Version None)
Quarter: 2011Q2

REPORT INFORMATION
  Report Type: 
  Country: None (occurrence: None)
  Receive Date: 20110415
  Receipt Date: 20110330
  Transmission Date: 20111010
  Serious: Yes (Other)
  Sender: FDA-Public Use
  Company Number: US-BAYER-200934371NA

PATIENT
  Age: 56 Year
  Sex: Female
  Weight: 78.912 kg

DRUGS (26)
  1. PREMARIN [Concomitant]
     Route: 048
  2. LASIX [Concomitant]
     Dosage: 40 MG, UNK
     Route: 042
     Dates: start: 20050719, end: 20050719
  3. PROTAMINE SULFATE [Concomitant]
     Dosage: 50 MG, UNK
     Route: 042
     Dates: start: 20050719, end: 20050719
  4. TRASYLOL [Suspect]
     Dosage: LODING DOSE, UNK
     Route: 042
     Dates: start: 20050719, end: 20050719
  5. LASIX [Concomitant]
     Dosage: 100 MG, UNK
     Route: 042
     Dates: start: 20050719, end: 20050719
  6. VISIPAQUE [IODINE,IODIXANOL] [Concomitant]
  7. DIOVAN [Concomitant]
     Dosage: UNK
     Route: 048
     Dates: end: 20050707
  8. NITROGLYCERIN [Concomitant]
     Dosage: UNK
     Route: 061
     Dates: start: 20050707
  9. BLOOD AND RELATED PRODUCTS [Concomitant]
     Dosage: 300 ML, UNK
     Route: 042
     Dates: start: 20050719, end: 20050719
  10. FENTANYL [Concomitant]
     Dosage: 2-10 CC, UNK
     Route: 042
     Dates: start: 20050719, end: 20050719
  11. SODIUM THIOPENTAL MITSUBISHI [Concomitant]
     Dosage: 300 MG, UNK
     Route: 042
     Dates: start: 20050719, end: 20050719
  12. HEPARIN [Concomitant]
     Dosage: 30000 U, UNK
     Route: 042
     Dates: start: 20050719, end: 20050719
  13. LIPITOR [Concomitant]
     Route: 048
  14. TIAZAC [Concomitant]
     Dosage: UNK
     Route: 048
     Dates: start: 20050701
  15. CALCIUM CHLORIDE [Concomitant]
     Dosage: 250 MG, UNK
     Route: 042
     Dates: start: 20050719, end: 20050719
  16. TRASYLOL [Suspect]
     Indication: CORONARY ARTERY BYPASS
     Dosage: 1 ML, ONCE
     Route: 042
     Dates: start: 20050719
  17. PLAVIX [Concomitant]
     Dosage: UNK
     Route: 048
     Dates: end: 20050712
  18. ACCUPRIL [Concomitant]
     Dosage: UNK
     Route: 048
  19. ACETYLSALICYLIC ACID SRT [Concomitant]
     Route: 048
  20. HYDROCHLOROTHIAZIDE [Concomitant]
     Route: 048
  21. NITROGLYCERIN [Concomitant]
     Dosage: 5 ML, UNK
     Route: 042
     Dates: start: 20050719, end: 20050719
  22. MUCOMYST [Concomitant]
     Dosage: 600 MG, BID
     Route: 048
     Dates: start: 20050709
  23. ZINACEF [Concomitant]
     Dosage: 1.5 G, UNK
     Route: 042
     Dates: start: 20050719, end: 20050719
  24. CORLOPAM [Concomitant]
     Indication: UNEVALUABLE EVENT
     Dosage: 0.025 MCG/KG/MIN, UNK
     Route: 042
     Dates: start: 20050719, end: 20050719
  25. VERSED [Concomitant]
     Dosage: UNK
     Route: 042
     Dates: start: 20050719, end: 20050719
  26. SUCCINYLCHOLINE CHLORIDE [Concomitant]
     Dosage: 110 UNK, UNK
     Route: 042
     Dates: start: 20050719, end: 20050719

REACTIONS (12)
  - INJURY [None]
  - UNEVALUABLE EVENT [None]
  - ANHEDONIA [None]
  - FEAR [None]
  - RENAL INJURY [None]
  - NERVOUSNESS [None]
  - MULTI-ORGAN FAILURE [None]
  - ANXIETY [None]
  - DEPRESSION [None]
  - RENAL FAILURE [None]
  - PAIN [None]
  - EMOTIONAL DISTRESS [None]
